FAERS Safety Report 5496607-3 (Version None)
Quarter: 2007Q4

REPORT INFORMATION
  Report Type: 
  Country: None (occurrence: None)
  Receive Date: 20071025
  Receipt Date: 20070716
  Transmission Date: 20080405
  Serious: No
  Sender: FDA-Public Use
  Company Number: A0659967A

PATIENT
  Age: 82 Year
  Sex: Female

DRUGS (8)
  1. ADVAIR DISKUS 100/50 [Suspect]
     Indication: ASTHMA
     Route: 055
     Dates: start: 20050101
  2. COMBIVENT [Concomitant]
  3. CALAN [Concomitant]
  4. COZAAR [Concomitant]
  5. LEVOTHYROXINE SODIUM [Concomitant]
  6. NEXIUM [Concomitant]
  7. DYAZIDE [Concomitant]
  8. LORATADINE [Concomitant]

REACTIONS (1)
  - DYSPHONIA [None]
